FAERS Safety Report 8499949-2 (Version None)
Quarter: 2012Q3

REPORT INFORMATION
  Report Type: 
  Country: None (occurrence: None)
  Receive Date: 20120710
  Receipt Date: 20120703
  Transmission Date: 20120928
  Serious: Yes (Hospitalization)
  Sender: FDA-Public Use
  Company Number: US-BAYER-2012-031544

PATIENT
  Age: 49 Year
  Sex: Female
  Weight: 56.689 kg

DRUGS (11)
  1. MS CONTIN [Concomitant]
     Dosage: UNK
     Dates: start: 20050903
  2. YASMIN [Suspect]
     Indication: PREMENSTRUAL SYNDROME
     Dosage: UNK
     Dates: start: 20050101, end: 20060901
  3. HYDROMORPHONE HCL [Concomitant]
     Indication: PAIN
     Route: 048
  4. FERROUS SULFATE TAB [Concomitant]
     Dosage: UNK
     Dates: start: 20050903
  5. AGGRENOX [Concomitant]
     Dosage: 25 MG, DAILY
  6. PEPCID [Concomitant]
     Dosage: UNK
     Dates: start: 20050903
  7. GABAPENTIN [Concomitant]
     Dosage: 600 MG, BID
     Route: 048
  8. ZELNORM [Concomitant]
     Dosage: UNK UNK, PRN
  9. QUININE SULFATE [Concomitant]
     Dosage: UNK UNK, PRN
  10. IRON [Concomitant]
     Indication: ANAEMIA
     Dosage: 10 MG, QD
     Dates: start: 20060101
  11. METRONIDAZOLE [Concomitant]

REACTIONS (7)
  - CEREBROVASCULAR ACCIDENT [None]
  - THROMBOSIS [None]
  - TRANSIENT ISCHAEMIC ATTACK [None]
  - HYPOAESTHESIA [None]
  - AMNESIA [None]
  - MENTAL DISORDER [None]
  - DEEP VEIN THROMBOSIS [None]
